FAERS Safety Report 4721661-3 (Version None)
Quarter: 2005Q3

REPORT INFORMATION
  Report Type: 
  Country: None (occurrence: None)
  Receive Date: 20050721
  Receipt Date: 20050210
  Transmission Date: 20060218
  Serious: No
  Sender: FDA-Public Use
  Company Number: US-BRISTOL-MYERS SQUIBB COMPANY-12856324

PATIENT
  Age: 76 Year
  Sex: Male
  Weight: 66 kg

DRUGS (15)
  1. COUMADIN [Suspect]
     Indication: HEART VALVE REPLACEMENT
     Dosage: 5 MG FIVE TIMES PER WEEK AND 2.5 MG TWICE PER WEEK
     Dates: start: 19830101
  2. ALDACTONE [Concomitant]
  3. AMANTADINE [Concomitant]
  4. ATACAND [Concomitant]
  5. ASPIRIN [Concomitant]
  6. FOLIC ACID [Concomitant]
  7. K-DUR 10 [Concomitant]
  8. LANOXIN [Concomitant]
  9. LASIX [Concomitant]
  10. LIPITOR [Concomitant]
  11. METOPROLOL [Concomitant]
  12. SINEMET [Concomitant]
  13. VERAPAMIL [Concomitant]
  14. VITAMIN E [Concomitant]
  15. VITAMIN B6 [Concomitant]

REACTIONS (1)
  - INTERNATIONAL NORMALISED RATIO FLUCTUATION [None]
